FAERS Safety Report 25171883 (Version 1)
Quarter: 2025Q2

REPORT INFORMATION
  Report Type: Spontaneous
  Country: TW (occurrence: TW)
  Receive Date: 20250408
  Receipt Date: 20250408
  Transmission Date: 20250716
  Serious: No
  Sender: ALKEM
  Company Number: TW-ALKEM LABORATORIES LIMITED-TW-ALKEM-2024-05988

PATIENT
  Age: 19 Year
  Sex: Male

DRUGS (1)
  1. ARIPIPRAZOLE [Suspect]
     Active Substance: ARIPIPRAZOLE
     Indication: Schizophrenia
     Route: 048

REACTIONS (1)
  - Hiccups [Recovered/Resolved]
